FAERS Safety Report 9078240 (Version 1)
Quarter: 2013Q1

REPORT INFORMATION
  Report Type: Report from Study
  Country: US (occurrence: US)
  Receive Date: 20130130
  Receipt Date: 20130130
  Transmission Date: 20140127
  Serious: No
  Sender: FDA-Public Use
  Company Number: US-ABBOTT-12P-163-0975619-00

PATIENT
  Age: 75 Year
  Sex: Female
  Weight: 59.02 kg

DRUGS (13)
  1. HUMIRA 40 MG/0.8 ML PEN [Suspect]
     Indication: ANKYLOSING SPONDYLITIS
     Route: 058
     Dates: start: 20120503
  2. PROZAC [Suspect]
     Indication: DEPRESSION
     Dates: start: 20120810, end: 20120830
  3. PROZAC [Suspect]
     Indication: ANXIETY
     Dates: start: 20120831
  4. PANTOPRAZOLE [Concomitant]
     Indication: EROSIVE OESOPHAGITIS
  5. PANTOPRAZOLE [Concomitant]
     Indication: GASTROOESOPHAGEAL REFLUX DISEASE
  6. ZYPREXA [Concomitant]
     Indication: DEPRESSION
  7. XANAX [Concomitant]
     Indication: ANXIETY
  8. XANAX [Concomitant]
     Indication: DEPRESSION
  9. CENTRUM [Concomitant]
     Indication: PRODUCT USED FOR UNKNOWN INDICATION
  10. CALTRATE WITH VITAMIN D [Concomitant]
     Indication: PRODUCT USED FOR UNKNOWN INDICATION
  11. FISH [Concomitant]
     Indication: PRODUCT USED FOR UNKNOWN INDICATION
  12. VITAMIN B COMPLEX [Concomitant]
     Indication: PRODUCT USED FOR UNKNOWN INDICATION
  13. CRANBERRY [Concomitant]
     Indication: PRODUCT USED FOR UNKNOWN INDICATION

REACTIONS (1)
  - Candida infection [Not Recovered/Not Resolved]
